FAERS Safety Report 24015440 (Version 1)
Quarter: 2024Q2

REPORT INFORMATION
  Report Type: Spontaneous
  Country: US (occurrence: US)
  Receive Date: 20240626
  Receipt Date: 20240626
  Transmission Date: 20240717
  Serious: No
  Sender: FDA-Public Use
  Company Number: US-HALEON-2183651

PATIENT
  Age: 44 Year
  Sex: Female

DRUGS (2)
  1. NICODERM CQ [Suspect]
     Active Substance: NICOTINE
     Indication: Smoking cessation therapy
  2. NICORETTE SPEARMINT BURST [Suspect]
     Active Substance: NICOTINE
     Indication: Smoking cessation therapy

REACTIONS (5)
  - Application site rash [Recovered/Resolved]
  - Application site erythema [Unknown]
  - Dry skin [Unknown]
  - Pruritus [Not Recovered/Not Resolved]
  - Abdominal pain upper [Recovered/Resolved]
